FAERS Safety Report 8517032-4 (Version None)
Quarter: 2012Q3

REPORT INFORMATION
  Report Type: 
  Country: None (occurrence: None)
  Receive Date: 20120718
  Receipt Date: 20120313
  Transmission Date: 20120928
  Serious: No
  Sender: FDA-Public Use
  Company Number: US-FOUGERA-2012FO001014

PATIENT
  Age: 75 Year
  Sex: Female
  Weight: 113.4 kg

DRUGS (8)
  1. CLOTRIMAZOLE/BETAMETHASONE DIPROPIONATE [Suspect]
     Indication: DYSURIA
     Route: 061
  2. CLOTRIMAZOLE/BETAMETHASONE DIPROPIONATE [Suspect]
     Indication: VULVOVAGINAL DRYNESS
     Route: 061
  3. WARFARIN SODIUM [Concomitant]
     Indication: ATRIAL FIBRILLATION
     Dates: start: 20080101
  4. WARFARIN SODIUM [Concomitant]
     Dates: start: 20080101
  5. CLOTRIMAZOLE/BETAMETHASONE DIPROPIONATE [Suspect]
     Indication: VULVOVAGINAL DISCOMFORT
     Route: 061
  6. CLOTRIMAZOLE/BETAMETHASONE DIPROPIONATE [Suspect]
     Route: 061
  7. CLOTRIMAZOLE/BETAMETHASONE DIPROPIONATE [Suspect]
     Route: 061
  8. CLOTRIMAZOLE/BETAMETHASONE DIPROPIONATE [Suspect]
     Route: 061

REACTIONS (11)
  - SKIN DISCOLOURATION [None]
  - APHTHOUS STOMATITIS [None]
  - BLOOD BLISTER [None]
  - OFF LABEL USE [None]
  - CONDITION AGGRAVATED [None]
  - APPLICATION SITE BLEEDING [None]
  - HYPERSENSITIVITY [None]
  - DYSURIA [None]
  - APPLICATION SITE ULCER [None]
  - APPLICATION SITE DISCOMFORT [None]
  - APPLICATION SITE ATROPHY [None]
